FAERS Safety Report 12395080 (Version 1)
Quarter: 2016Q2

REPORT INFORMATION
  Report Type: Spontaneous
  Country: GB (occurrence: GB)
  Receive Date: 20160523
  Receipt Date: 20160523
  Transmission Date: 20160815
  Serious: Yes (Other)
  Sender: FDA-Public Use
  Company Number: GB-WATSON-2016-10101

PATIENT
  Age: 57 Year
  Sex: Male
  Weight: 80 kg

DRUGS (1)
  1. TRIMETHOPRIM (UNKNOWN) [Suspect]
     Active Substance: TRIMETHOPRIM
     Indication: PROSTATITIS
     Dosage: 400 MG, DAILY
     Route: 048
     Dates: start: 20160416, end: 20160426

REACTIONS (9)
  - Lip swelling [Recovering/Resolving]
  - Discomfort [Recovering/Resolving]
  - Local swelling [Recovering/Resolving]
  - Irritability [Recovering/Resolving]
  - Lymphadenopathy [Recovering/Resolving]
  - Fatigue [Recovering/Resolving]
  - Swelling face [Recovering/Resolving]
  - Muscle spasms [Recovering/Resolving]
  - Swollen tongue [Recovering/Resolving]

NARRATIVE: CASE EVENT DATE: 20160419
